FAERS Safety Report 4862087-1 (Version None)
Quarter: 2005Q4

REPORT INFORMATION
  Report Type: 
  Country: None (occurrence: None)
  Receive Date: 20051221
  Receipt Date: 20051215
  Transmission Date: 20060501
  Serious: Yes (Death)
  Sender: FDA-Public Use
  Company Number: DE-BOEHRINGER INGELHEIM PHARMACEUTICALS, INC.-2005-DE-05500DE

PATIENT
  Age: 16 Year
  Sex: Female
  Weight: 50 kg

DRUGS (2)
  1. CLONIDINE [Suspect]
     Route: 042
     Dates: start: 20051126
  2. INTRATECT [Suspect]
     Indication: ANAPHYLACTIC SHOCK
     Dates: start: 20051127

REACTIONS (6)
  - ANAPHYLACTIC SHOCK [None]
  - BLOOD PRESSURE INCREASED [None]
  - BRAIN DEATH [None]
  - BRAIN OEDEMA [None]
  - GUILLAIN-BARRE SYNDROME [None]
  - RESPIRATORY FAILURE [None]
